FAERS Safety Report 10003582 (Version 2)
Quarter: 2014Q1

REPORT INFORMATION
  Report Type: Spontaneous
  Country: US (occurrence: US)
  Receive Date: 20140312
  Receipt Date: 20140312
  Transmission Date: 20141002
  Serious: No
  Sender: FDA-Public Use
  Company Number: US-ASTRAZENECA-2013SE54842

PATIENT
  Age: 58 Year
  Sex: Male
  Weight: 82.1 kg

DRUGS (20)
  1. LISINOPRIL HCTZ [Suspect]
     Route: 048
     Dates: start: 2008
  2. SEROQUEL XR [Suspect]
     Indication: BIPOLAR I DISORDER
     Route: 048
     Dates: start: 2010
  3. SEROQUEL XR [Suspect]
     Indication: DEPRESSION
     Route: 048
     Dates: start: 2010
  4. SEROQUEL XR [Suspect]
     Indication: BIPOLAR I DISORDER
     Route: 048
     Dates: start: 20130710
  5. SEROQUEL XR [Suspect]
     Indication: DEPRESSION
     Route: 048
     Dates: start: 20130710
  6. SEROQUEL XR [Suspect]
     Indication: BIPOLAR I DISORDER
     Route: 048
     Dates: start: 20130711
  7. SEROQUEL XR [Suspect]
     Indication: DEPRESSION
     Route: 048
     Dates: start: 20130711
  8. SEROQUEL XR [Suspect]
     Indication: BIPOLAR I DISORDER
     Route: 048
     Dates: start: 20130712, end: 20130714
  9. SEROQUEL XR [Suspect]
     Indication: DEPRESSION
     Route: 048
     Dates: start: 20130712, end: 20130714
  10. SEROQUEL XR [Suspect]
     Indication: BIPOLAR I DISORDER
     Route: 048
     Dates: start: 20131121
  11. SEROQUEL XR [Suspect]
     Indication: DEPRESSION
     Route: 048
     Dates: start: 20131121
  12. SEROQUEL XR [Suspect]
     Indication: BIPOLAR I DISORDER
     Dosage: HAD GOTTEN FROM THE DOCTOR
     Route: 048
     Dates: start: 20131124, end: 20131203
  13. SEROQUEL XR [Suspect]
     Indication: DEPRESSION
     Dosage: HAD GOTTEN FROM THE DOCTOR
     Route: 048
     Dates: start: 20131124, end: 20131203
  14. SEROQUEL XR [Suspect]
     Indication: BIPOLAR I DISORDER
     Route: 048
     Dates: start: 20131203
  15. SEROQUEL XR [Suspect]
     Indication: DEPRESSION
     Route: 048
     Dates: start: 20131203
  16. ASPIRIN [Concomitant]
  17. MULTIVITAMIN [Concomitant]
     Dosage: DAILY
  18. FISH OIL [Concomitant]
  19. GARLIC [Concomitant]
     Dosage: DAILY
  20. METOPROLOL TARTRATE [Concomitant]

REACTIONS (11)
  - Hypertension [Unknown]
  - Dehydration [Unknown]
  - Night sweats [Unknown]
  - Panic attack [Recovered/Resolved]
  - Hyperlipidaemia [Unknown]
  - Insomnia [Recovered/Resolved]
  - Cold sweat [Not Recovered/Not Resolved]
  - Bipolar disorder [Unknown]
  - Hyperhidrosis [Unknown]
  - Dysgeusia [Not Recovered/Not Resolved]
  - Nausea [Not Recovered/Not Resolved]
